FAERS Safety Report 21386248 (Version 1)
Quarter: 2022Q3

REPORT INFORMATION
  Report Type: Spontaneous
  Country: CN (occurrence: CN)
  Receive Date: 20220928
  Receipt Date: 20220928
  Transmission Date: 20221027
  Serious: Yes (Life-Threatening)
  Sender: FDA-Public Use
  Company Number: CN-BAYER-2022A134471

PATIENT
  Age: 64 Year
  Sex: Male
  Weight: 61 kg

DRUGS (2)
  1. ULTRAVIST [Suspect]
     Active Substance: IOPROMIDE
     Indication: Computerised tomogram head
     Dosage: 100 ML, ONCE
     Route: 042
     Dates: start: 20220808, end: 20220808
  2. ULTRAVIST [Suspect]
     Active Substance: IOPROMIDE
     Indication: Headache

REACTIONS (6)
  - Loss of consciousness [Recovering/Resolving]
  - Abdominal discomfort [None]
  - Hyperhidrosis [None]
  - Pallor [None]
  - Blood pressure immeasurable [Recovered/Resolved]
  - Heart rate increased [Not Recovered/Not Resolved]

NARRATIVE: CASE EVENT DATE: 20220808
